FAERS Safety Report 6163352-0 (Version None)
Quarter: 2009Q2

REPORT INFORMATION
  Report Type: 
  Country: None (occurrence: None)
  Receive Date: 20090422
  Receipt Date: 20090414
  Transmission Date: 20091009
  Serious: Yes (Life-Threatening, Hospitalization)
  Sender: FDA-Public Use
  Company Number: BE-JNJFOC-20080306151

PATIENT
  Sex: Male
  Weight: 84 kg

DRUGS (10)
  1. REMICADE [Suspect]
     Route: 042
  2. REMICADE [Suspect]
     Route: 042
  3. REMICADE [Suspect]
     Indication: CROHN'S DISEASE
     Route: 042
  4. METHYLPREDNISOLONE ACETATE [Suspect]
     Indication: CROHN'S DISEASE
  5. ADALIMUMAB [Suspect]
     Indication: CROHN'S DISEASE
  6. PURINETHOL [Concomitant]
     Indication: CROHN'S DISEASE
  7. NICOTIBINE [Concomitant]
  8. RIFADIN [Concomitant]
  9. TEBRAZID [Concomitant]
  10. MYAMBUTOL [Concomitant]

REACTIONS (3)
  - IMMUNE RECONSTITUTION SYNDROME [None]
  - TUBERCULOSIS [None]
  - VENOUS THROMBOSIS [None]
